FAERS Safety Report 6395713-9 (Version None)
Quarter: 2009Q4

REPORT INFORMATION
  Report Type: 
  Country: None (occurrence: None)
  Receive Date: 20091007
  Receipt Date: 20090923
  Transmission Date: 20100525
  Serious: Yes (Other)
  Sender: FDA-Public Use
  Company Number: 2009AP003903

PATIENT
  Sex: Female

DRUGS (1)
  1. KETOTIFEN FUMARATE [Suspect]
     Indication: HYPERSENSITIVITY
     Dosage: 1 GTT; QD; OPH
     Route: 047

REACTIONS (4)
  - EYE PAIN [None]
  - EYE PRURITUS [None]
  - OCULAR HYPERAEMIA [None]
  - VISION BLURRED [None]
